FAERS Safety Report 25476436 (Version 2)
Quarter: 2025Q3

REPORT INFORMATION
  Report Type: Spontaneous
  Country: PG (occurrence: PG)
  Receive Date: 20250625
  Receipt Date: 20250716
  Transmission Date: 20251021
  Serious: Yes (Death, Hospitalization)
  Sender: NOVARTIS
  Company Number: PG-002147023-NVSC2025PG101043

PATIENT
  Age: 45 Year
  Sex: Male

DRUGS (1)
  1. GLIVEC [Suspect]
     Active Substance: IMATINIB MESYLATE
     Indication: Chronic myeloid leukaemia
     Route: 048
     Dates: start: 20250620

REACTIONS (8)
  - Chronic myeloid leukaemia [Fatal]
  - Blast crisis in myelogenous leukaemia [Fatal]
  - Cardio-respiratory arrest [Fatal]
  - Confusional state [Fatal]
  - Agitation [Fatal]
  - Asthenia [Unknown]
  - Abdominal distension [Unknown]
  - Illness [Unknown]

NARRATIVE: CASE EVENT DATE: 20250601
